FAERS Safety Report 10067389 (Version 1)
Quarter: 2014Q2

REPORT INFORMATION
  Report Type: Spontaneous
  Country: US (occurrence: None)
  Receive Date: 20140408
  Receipt Date: 20140408
  Transmission Date: 20141212
  Serious: Yes (Other)
  Sender: FDA-Public Use
  Company Number: None

PATIENT
  Age: 67 Year
  Sex: Female

DRUGS (2)
  1. MARCAINE SPINAL [Suspect]
     Indication: SPINAL ANAESTHESIA
     Route: 037
  2. MARCAINE SPINAL [Suspect]
     Indication: HIP ARTHROPLASTY
     Route: 037

REACTIONS (1)
  - Pain in extremity [None]
